FAERS Safety Report 13243996 (Version 1)
Quarter: 2017Q1

REPORT INFORMATION
  Report Type: Spontaneous
  Country: US (occurrence: US)
  Receive Date: 20170217
  Receipt Date: 20170217
  Transmission Date: 20170428
  Serious: No
  Sender: FDA-Public Use
  Company Number: None

PATIENT
  Age: 59 Year
  Sex: Male
  Weight: 106.23 kg

DRUGS (16)
  1. METFORMIN [Concomitant]
     Active Substance: METFORMIN HYDROCHLORIDE
  2. PRILOSEC [Concomitant]
     Active Substance: OMEPRAZOLE MAGNESIUM
  3. CLOZAPINE 100MG TEVA [Suspect]
     Active Substance: CLOZAPINE
  4. CLOZAPINE 25MG TEVA [Suspect]
     Active Substance: CLOZAPINE
  5. ZOLOFT [Concomitant]
     Active Substance: SERTRALINE HYDROCHLORIDE
  6. SYNTHROID [Concomitant]
     Active Substance: LEVOTHYROXINE SODIUM
  7. MIRALAX [Concomitant]
     Active Substance: POLYETHYLENE GLYCOL 3350
  8. VITAMIN C [Concomitant]
     Active Substance: ASCORBIC ACID
  9. DEPAKOTE [Concomitant]
     Active Substance: DIVALPROEX SODIUM
  10. SINGULAIR [Concomitant]
     Active Substance: MONTELUKAST SODIUM
  11. SPIRIVA [Concomitant]
     Active Substance: TIOTROPIUM BROMIDE MONOHYDRATE
  12. CELEBREX [Concomitant]
     Active Substance: CELECOXIB
  13. CLARITIN [Concomitant]
     Active Substance: LORATADINE
  14. FISH OIL [Concomitant]
     Active Substance: FISH OIL
  15. CLOZAPINE 200MG TEVA [Suspect]
     Active Substance: CLOZAPINE
     Indication: SCHIZOPHRENIA
     Route: 048
  16. NUIRON [Concomitant]

REACTIONS (6)
  - Pyrexia [None]
  - Neutropenia [None]
  - Haemoglobin decreased [None]
  - Chronic obstructive pulmonary disease [None]
  - Condition aggravated [None]
  - Platelet count decreased [None]

NARRATIVE: CASE EVENT DATE: 20170110
